FAERS Safety Report 18076609 (Version 2)
Quarter: 2020Q3

REPORT INFORMATION
  Report Type: Spontaneous
  Country: FR (occurrence: FR)
  Receive Date: 20200727
  Receipt Date: 20200816
  Transmission Date: 20201103
  Serious: Yes (Death)
  Sender: FDA-Public Use
  Company Number: NVSC2020FR209572

PATIENT
  Age: 50 Year
  Sex: Female
  Weight: 30 kg

DRUGS (3)
  1. SANDOSTATIN LAR DEPOT [Suspect]
     Active Substance: OCTREOTIDE ACETATE
  2. SANDOSTATIN LAR DEPOT [Suspect]
     Active Substance: OCTREOTIDE ACETATE
     Indication: NEOPLASM MALIGNANT
     Dosage: 60 MG, QD (3 INJECTIONS OF 20 MG)
     Route: 065
     Dates: start: 20200712
  3. SANDOSTATIN LAR DEPOT [Suspect]
     Active Substance: OCTREOTIDE ACETATE

REACTIONS (2)
  - Product prescribing issue [Unknown]
  - Death [Fatal]
